FAERS Safety Report 22864015 (Version 3)
Quarter: 2023Q4

REPORT INFORMATION
  Report Type: Spontaneous
  Country: US (occurrence: US)
  Receive Date: 20230825
  Receipt Date: 20231124
  Transmission Date: 20240109
  Serious: No
  Sender: FDA-Public Use
  Company Number: US-BRISTOL-MYERS SQUIBB COMPANY-2023-119554

PATIENT
  Age: 47 Year
  Sex: Male

DRUGS (1)
  1. REVLIMID [Suspect]
     Active Substance: LENALIDOMIDE
     Indication: Product used for unknown indication
     Dosage: FREQUENCY- FOR 21 DAYS ON, THEN 7 DAYS OFF
     Route: 048

REACTIONS (3)
  - Lactose intolerance [Unknown]
  - Diarrhoea [Recovering/Resolving]
  - Memory impairment [Unknown]
